FAERS Safety Report 5765749-7 (Version None)
Quarter: 2008Q2

REPORT INFORMATION
  Report Type: 
  Country: None (occurrence: None)
  Receive Date: 20080606
  Receipt Date: 20080523
  Transmission Date: 20081010
  Serious: Yes (Death, Hospitalization)
  Sender: FDA-Public Use
  Company Number: TRP_05738_2008

PATIENT
  Age: 51 Year
  Sex: Female

DRUGS (7)
  1. RIBAVIRIN [Suspect]
     Indication: HEPATITIS C VIRUS
     Dosage: 1000 MG ORAL
     Route: 048
  2. PEGASYS [Suspect]
     Indication: HEPATITIS C VIRUS
     Dosage: 180 ?G 1X/WEEK SUBCUTANEOUS
     Route: 058
  3. OLANZAPINE [Concomitant]
  4. FLUOXETINE [Concomitant]
  5. FUROSEMIDE [Concomitant]
  6. SPIRONOLACTONE [Concomitant]
  7. POTASSIUM CHLORIDE [Concomitant]

REACTIONS (15)
  - ACUTE RESPIRATORY DISTRESS SYNDROME [None]
  - BLOOD PRESSURE DIASTOLIC DECREASED [None]
  - BRONCHOPNEUMONIA [None]
  - CHEST PAIN [None]
  - GENERAL PHYSICAL HEALTH DETERIORATION [None]
  - IMMUNOSUPPRESSION [None]
  - LIVER DISORDER [None]
  - MYALGIA [None]
  - NO THERAPEUTIC RESPONSE [None]
  - PLEURAL EFFUSION [None]
  - PLEURITIC PAIN [None]
  - RENAL FAILURE [None]
  - RESPIRATORY FAILURE [None]
  - SEPTIC SHOCK [None]
  - THROMBOCYTOPENIA [None]
